FAERS Safety Report 4827422-9 (Version None)
Quarter: 2005Q4

REPORT INFORMATION
  Report Type: 
  Country: None (occurrence: None)
  Receive Date: 20051110
  Receipt Date: 20051025
  Transmission Date: 20060501
  Serious: Yes (Death, Hospitalization)
  Sender: FDA-Public Use
  Company Number: DSA_27333_2005

PATIENT
  Age: 76 Year
  Sex: Female

DRUGS (17)
  1. TEMESTA [Suspect]
     Dosage: 500 MCG Q DAY PO
     Route: 048
     Dates: start: 20040830, end: 20040913
  2. EFFEXOR [Suspect]
     Dosage: 37.5 MG Q DAY PO
     Route: 048
     Dates: start: 20040831, end: 20040913
  3. ADRIBLASTINE [Suspect]
     Indication: MULTIPLE MYELOMA
     Dosage: 30 MG ONCE IV
     Route: 042
     Dates: start: 20040901, end: 20040901
  4. DEXAMETHASONE [Suspect]
     Indication: MULTIPLE MYELOMA
     Dosage: 40 MG Q DAY PO
     Route: 048
     Dates: start: 20040901, end: 20040909
  5. MELPHALAN [Suspect]
     Indication: MULTIPLE MYELOMA
     Dosage: DF
     Dates: start: 20010101
  6. PARIET [Suspect]
     Dosage: 1 TAB Q DAY PO
     Route: 048
     Dates: start: 20040831, end: 20040913
  7. PREDNISONE [Suspect]
     Indication: MULTIPLE MYELOMA
     Dosage: DF
     Dates: start: 20010101
  8. SOLU-MEDROL [Suspect]
     Dosage: 20 MG Q DAY PO
     Route: 048
     Dates: start: 20040831, end: 20040913
  9. THALIDOMIDE [Suspect]
     Indication: MULTIPLE MYELOMA
     Dosage: 200 MG Q DAY PO
     Route: 048
     Dates: start: 20040830, end: 20040902
  10. THALIDOMIDE [Suspect]
     Indication: MULTIPLE MYELOMA
     Dosage: 100 MG ONCE PO
     Route: 048
     Dates: start: 20040903, end: 20040903
  11. VINCRISTINE [Suspect]
     Indication: MULTIPLE MYELOMA
     Dosage: DF
     Dates: start: 20040901
  12. ZOMETA [Suspect]
     Dosage: 4 MG Q DAY IV
     Route: 042
     Dates: start: 20040831, end: 20040831
  13. SKENAN [Concomitant]
  14. LEVOTHYROX [Concomitant]
  15. SPECIAFOLDINE [Concomitant]
  16. DIFFU K [Concomitant]
  17. MAGNE-B6 [Concomitant]

REACTIONS (10)
  - COMA [None]
  - CONDITION AGGRAVATED [None]
  - INFECTION [None]
  - LEUKOPENIA [None]
  - LUNG INFECTION PSEUDOMONAL [None]
  - NEUTROPENIA [None]
  - PSEUDOMONAL SEPSIS [None]
  - PYREXIA [None]
  - RED BLOOD CELL COUNT DECREASED [None]
  - THROMBOCYTOPENIA [None]
